FAERS Safety Report 7808503-4 (Version None)
Quarter: 2011Q4

REPORT INFORMATION
  Report Type: 
  Country: None (occurrence: None)
  Receive Date: 20111012
  Receipt Date: 20111003
  Transmission Date: 20120403
  Serious: Yes (Hospitalization)
  Sender: FDA-Public Use
  Company Number: US-JNJFOC-20110904591

PATIENT
  Sex: Male

DRUGS (2)
  1. REMICADE [Suspect]
     Indication: COLITIS ULCERATIVE
     Route: 042
     Dates: start: 20090101
  2. REMICADE [Suspect]
     Route: 042
     Dates: start: 20110823

REACTIONS (6)
  - CHILLS [None]
  - WHITE BLOOD CELL COUNT DECREASED [None]
  - VIRAL INFECTION [None]
  - HYPERHIDROSIS [None]
  - MYALGIA [None]
  - MALAISE [None]
